FAERS Safety Report 24545060 (Version 1)
Quarter: 2024Q4

REPORT INFORMATION
  Report Type: Spontaneous
  Country: CN (occurrence: CN)
  Receive Date: 20241024
  Receipt Date: 20241024
  Transmission Date: 20250115
  Serious: Yes (Other)
  Sender: ROCHE
  Company Number: CN-ROCHE-10000114995

PATIENT
  Age: 7 Year
  Sex: Female
  Weight: 39 kg

DRUGS (1)
  1. RITUXIMAB [Suspect]
     Active Substance: RITUXIMAB
     Indication: Platelet count decreased
     Dosage: THE PATIENT EXPERIENCED OFF LABEL USE (DRUG INTENTIONAL USED FOR UNLABELED INDICATION).
     Route: 042
     Dates: start: 20241020, end: 20241020

REACTIONS (5)
  - Oropharyngeal pain [Recovering/Resolving]
  - Dyspnoea [Recovering/Resolving]
  - Abdominal pain [Recovering/Resolving]
  - Off label use [Unknown]
  - Laryngeal oedema [Recovering/Resolving]

NARRATIVE: CASE EVENT DATE: 20241020
